FAERS Safety Report 25433386 (Version 1)
Quarter: 2025Q2

REPORT INFORMATION
  Report Type: Spontaneous
  Country: US (occurrence: US)
  Receive Date: 20250613
  Receipt Date: 20250613
  Transmission Date: 20250716
  Serious: No
  Sender: ALVOGEN
  Company Number: None

PATIENT

DRUGS (1)
  1. LISDEXAMFETAMINE [Suspect]
     Active Substance: LISDEXAMFETAMINE
     Indication: Product used for unknown indication

REACTIONS (8)
  - Feeling abnormal [Unknown]
  - Feeling jittery [Unknown]
  - Condition aggravated [Unknown]
  - Mood swings [Unknown]
  - Headache [Unknown]
  - Drug effect less than expected [Unknown]
  - Product substitution issue [Unknown]
  - Therapeutic response decreased [Unknown]
